FAERS Safety Report 6374354-3 (Version None)
Quarter: 2009Q3

REPORT INFORMATION
  Report Type: 
  Country: None (occurrence: None)
  Receive Date: 20090924
  Receipt Date: 20090922
  Transmission Date: 20100115
  Serious: Yes (Death, Hospitalization)
  Sender: FDA-Public Use
  Company Number: US-TEVA-148865USA

PATIENT
  Sex: Female
  Weight: 63.106 kg

DRUGS (10)
  1. FLUOROURACIL [Suspect]
     Indication: COLORECTAL CANCER
     Dosage: 3024 MG, EVERY OTHER WEEK
     Route: 042
     Dates: start: 20060530, end: 20061226
  2. FOLINIC ACID [Suspect]
     Dosage: ONCE OVER 2 HOURS
     Route: 042
     Dates: start: 20060530, end: 20061226
  3. AG-013, 736 (AG-013,736) [Suspect]
     Indication: COLORECTAL CANCER
     Route: 048
     Dates: start: 20060531, end: 20070108
  4. OXALIPLATIN [Suspect]
     Dosage: 142.8 MG EVERY OTHER WEEK
     Route: 042
     Dates: start: 20060530, end: 20061226
  5. BEVACIZUMAB [Suspect]
     Dosage: 50.4 MG EVERY OTHER WEEK
     Route: 042
     Dates: start: 20060503, end: 20061226
  6. LISINOPRIL [Concomitant]
     Dates: start: 20060101
  7. METFORMIN HCL [Concomitant]
     Route: 048
     Dates: start: 20060717
  8. PANTOPRAZOLE SODIUM [Concomitant]
     Route: 048
  9. ACETYLSALICYLIC ACID [Concomitant]
     Route: 048
  10. AMLODIPINE [Concomitant]
     Route: 048
     Dates: start: 20060613, end: 20060921

REACTIONS (3)
  - LIVER FUNCTION TEST ABNORMAL [None]
  - RESPIRATORY FAILURE [None]
  - URINARY TRACT INFECTION [None]
